FAERS Safety Report 5430534-2 (Version None)
Quarter: 2007Q3

REPORT INFORMATION
  Report Type: 
  Country: None (occurrence: None)
  Receive Date: 20070830
  Receipt Date: 20070815
  Transmission Date: 20080115
  Serious: Yes (Hospitalization, Other)
  Sender: FDA-Public Use
  Company Number: PHEH2007US11254

PATIENT
  Age: 76 Year
  Sex: Female

DRUGS (8)
  1. ZOMETA [Suspect]
     Dates: start: 20030321
  2. ACETAMINOPHEN W/ CODEINE [Concomitant]
  3. GENTAMICIN [Concomitant]
  4. PROCHLORPERAZINE [Concomitant]
     Dosage: 10 MG, UNK
  5. PREDNISOLONE [Concomitant]
  6. XALATAN [Concomitant]
     Dosage: 0.005 %, UNK
  7. ATROPINE [Concomitant]
     Dosage: 1 %, UNK
  8. FEMARA [Suspect]
     Dates: start: 20030321, end: 20070801

REACTIONS (5)
  - BLINDNESS [None]
  - EYE OPERATION [None]
  - LUNG NEOPLASM MALIGNANT [None]
  - LUNG OPERATION [None]
  - VISUAL ACUITY REDUCED [None]
